FAERS Safety Report 10985427 (Version 1)
Quarter: 2015Q1

REPORT INFORMATION
  Report Type: Spontaneous
  Country: US (occurrence: None)
  Receive Date: 20150313
  Receipt Date: 20150313
  Transmission Date: 20150721
  Serious: Yes (Other)
  Sender: FDA-Public Use
  Company Number: 1387638

PATIENT
  Sex: Female

DRUGS (1)
  1. XOLAIR [Suspect]
     Active Substance: OMALIZUMAB
     Indication: ASTHMA
     Dosage: 200 MG, 1 IN 14 D, SUBCUTANEOUS
     Route: 058
     Dates: start: 2001, end: 2007

REACTIONS (3)
  - Headache [None]
  - Influenza like illness [None]
  - Breast cancer [None]
